FAERS Safety Report 7914498-5 (Version None)
Quarter: 2011Q4

REPORT INFORMATION
  Report Type: 
  Country: None (occurrence: None)
  Receive Date: 20111110
  Receipt Date: 20111027
  Transmission Date: 20120403
  Serious: Yes (Other)
  Sender: FDA-Public Use
  Company Number: JPI-P-017938

PATIENT
  Age: 58 Year
  Sex: Female
  Weight: 113.3993 kg

DRUGS (10)
  1. XYREM [Suspect]
     Indication: FIBROMYALGIA
     Dosage: 4.5 GM (2.25 GM, 2 IN 1 D), ORAL 9 GM (4.5 GM, 2 IN 1D) ORAL
     Route: 048
     Dates: start: 20060913
  2. XYREM [Suspect]
     Indication: FIBROMYALGIA
     Dosage: 4.5 GM (2.25 GM, 2 IN 1 D), ORAL 9 GM (4.5 GM, 2 IN 1D) ORAL
     Route: 048
     Dates: start: 20110810
  3. TIZANIDINE HCL [Concomitant]
  4. HYDROCHLOROTHIAZIDE [Concomitant]
  5. EZETIMIBE AND SIMVASTATIN [Concomitant]
  6. GABAPENTIN [Concomitant]
  7. METOPROLOL SUCCINATE [Concomitant]
  8. POTASSIUM CITRATE [Concomitant]
  9. ESOMEPRAZOLE [Concomitant]
  10. DULOXETIME HYDROCHLORIDE [Concomitant]

REACTIONS (3)
  - CONDITION AGGRAVATED [None]
  - RENAL CANCER [None]
  - NEPHROLITHIASIS [None]
